FAERS Safety Report 19618042 (Version 1)
Quarter: 2021Q3

REPORT INFORMATION
  Report Type: Spontaneous
  Country: US (occurrence: US)
  Receive Date: 20210727
  Receipt Date: 20210727
  Transmission Date: 20211014
  Serious: No
  Sender: FDA-Public Use
  Company Number: US-BRISTOL-MYERS SQUIBB COMPANY-BMS-2021-070736

PATIENT
  Age: 70 Year
  Sex: Female
  Weight: 79.83 kg

DRUGS (3)
  1. HYDREA [Suspect]
     Active Substance: HYDROXYUREA
     Indication: WHITE BLOOD CELL COUNT INCREASED
     Dosage: 500 MILLIGRAM, BID
     Route: 048
     Dates: start: 20210622
  2. STATIN [ATORVASTATIN CALCIUM] [Concomitant]
     Active Substance: ATORVASTATIN CALCIUM
     Indication: BLOOD CHOLESTEROL ABNORMAL
     Dosage: UNK
     Route: 065
  3. AMLODIPINE [Concomitant]
     Active Substance: AMLODIPINE BESYLATE
     Indication: PRODUCT USED FOR UNKNOWN INDICATION
     Dosage: UNK
     Route: 065

REACTIONS (11)
  - Stomatitis [Recovered/Resolved]
  - Blood pressure decreased [Unknown]
  - Musculoskeletal stiffness [Unknown]
  - Asthenia [Unknown]
  - Intentional product use issue [Unknown]
  - Extra dose administered [Unknown]
  - Gait disturbance [Unknown]
  - Back pain [Unknown]
  - Somnolence [Unknown]
  - Decreased appetite [Unknown]
  - Stress [Unknown]

NARRATIVE: CASE EVENT DATE: 20210622
